FAERS Safety Report 10689111 (Version 2)
Quarter: 2015Q1

REPORT INFORMATION
  Report Type: Spontaneous
  Country: IT (occurrence: IT)
  Receive Date: 20150104
  Receipt Date: 20150116
  Transmission Date: 20150720
  Serious: Yes (Other)
  Sender: FDA-Public Use
  Company Number: IT-009507513-1501ITA000056

PATIENT

DRUGS (3)
  1. TEMOZOLOMIDE. [Suspect]
     Active Substance: TEMOZOLOMIDE
     Indication: NEUROENDOCRINE CARCINOMA
     Dosage: 200 MG/M2 DIE 1, 2, 3, EVERY 21 DAYS
     Route: 048
  2. EPIRUBICIN HYDROCHLORIDE. [Suspect]
     Active Substance: EPIRUBICIN HYDROCHLORIDE
     Indication: NEUROENDOCRINE CARCINOMA
     Dosage: 30 MG/M2 DIE 1, 2, 3, EVERY 21 DAYS
  3. FLUOROURACIL. [Suspect]
     Active Substance: FLUOROURACIL
     Indication: NEUROENDOCRINE CARCINOMA
     Dosage: 500 MG/M2 DIE 1, 2, 3, EVERY 21 DAYS

REACTIONS (1)
  - Myocardial infarction [Unknown]
